FAERS Safety Report 11223328 (Version 1)
Quarter: 2015Q2

REPORT INFORMATION
  Report Type: Spontaneous
  Country: US (occurrence: US)
  Receive Date: 20150627
  Receipt Date: 20150627
  Transmission Date: 20150821
  Serious: No
  Sender: FDA-Public Use
  Company Number: US-GALENA BIOPHARMA-1040225

PATIENT
  Age: 58 Year
  Sex: Male

DRUGS (2)
  1. ABSTRAL [Suspect]
     Active Substance: FENTANYL CITRATE
     Indication: POST LAMINECTOMY SYNDROME
     Route: 060
     Dates: end: 20131112
  2. DURAGESIC [Concomitant]
     Active Substance: FENTANYL
     Route: 003

REACTIONS (1)
  - Drug withdrawal syndrome [Not Recovered/Not Resolved]

NARRATIVE: CASE EVENT DATE: 20131113
